FAERS Safety Report 12736199 (Version 2)
Quarter: 2017Q1

REPORT INFORMATION
  Report Type: Report from Study
  Country: US (occurrence: US)
  Receive Date: 20160913
  Receipt Date: 20170127
  Transmission Date: 20170428
  Serious: Yes (Other)
  Sender: FDA-Public Use
  Company Number: US-ROCHE-1828605

PATIENT
  Age: 72 Year
  Sex: Male
  Weight: 71.4 kg

DRUGS (23)
  1. LENALIDOMIDE [Suspect]
     Active Substance: LENALIDOMIDE
     Dosage: COURSE ID 3
     Route: 048
     Dates: start: 20110411
  2. LENALIDOMIDE [Suspect]
     Active Substance: LENALIDOMIDE
     Dosage: COURSE ID 6
     Route: 048
     Dates: start: 20110613, end: 20110704
  3. DOCETAXEL. [Suspect]
     Active Substance: DOCETAXEL
     Dosage: COURSE ID 5
     Route: 042
     Dates: start: 20110523
  4. PREDNISONE. [Suspect]
     Active Substance: PREDNISONE
     Dosage: COURSE ID 5
     Route: 048
     Dates: start: 20110523
  5. BEVACIZUMAB [Suspect]
     Active Substance: BEVACIZUMAB
     Dosage: COURSE ID 3
     Route: 042
     Dates: start: 20110411
  6. DOCETAXEL. [Suspect]
     Active Substance: DOCETAXEL
     Indication: PROSTATE CANCER
     Dosage: 75 MG/M2 IV OVER 60 MINUTES ON CYCLE 1 DAY 1, REPEATED EVERY 21 DAYS (AS PER PROTOCOL)?COURSE ID 1
     Route: 042
     Dates: start: 20110222
  7. LENALIDOMIDE [Suspect]
     Active Substance: LENALIDOMIDE
     Dosage: COURSE ID 5
     Route: 048
     Dates: start: 20110523
  8. BEVACIZUMAB [Suspect]
     Active Substance: BEVACIZUMAB
     Dosage: COURSE ID 2
     Route: 042
     Dates: start: 20110321
  9. DOCETAXEL. [Suspect]
     Active Substance: DOCETAXEL
     Dosage: COURSE ID 3
     Route: 042
     Dates: start: 20110411
  10. PREDNISONE. [Suspect]
     Active Substance: PREDNISONE
     Dosage: COURSE ID 6
     Route: 048
     Dates: start: 20110613, end: 20110704
  11. LENALIDOMIDE [Suspect]
     Active Substance: LENALIDOMIDE
     Dosage: COURSE ID 4
     Route: 048
     Dates: start: 20110502
  12. BEVACIZUMAB [Suspect]
     Active Substance: BEVACIZUMAB
     Dosage: COURSE ID 4
     Route: 042
     Dates: start: 20110502
  13. BEVACIZUMAB [Suspect]
     Active Substance: BEVACIZUMAB
     Dosage: COURSE ID 5
     Route: 042
     Dates: start: 20110523
  14. DOCETAXEL. [Suspect]
     Active Substance: DOCETAXEL
     Dosage: COURSE ID 4
     Route: 042
     Dates: start: 20110502
  15. DOCETAXEL. [Suspect]
     Active Substance: DOCETAXEL
     Dosage: COURSE ID 2
     Route: 042
     Dates: start: 20110321
  16. DOCETAXEL. [Suspect]
     Active Substance: DOCETAXEL
     Dosage: COURSE ID 6
     Route: 042
     Dates: start: 20110313, end: 20110704
  17. PREDNISONE. [Suspect]
     Active Substance: PREDNISONE
     Dosage: COURSE ID 2
     Route: 048
  18. LENALIDOMIDE [Suspect]
     Active Substance: LENALIDOMIDE
     Indication: PROSTATE CANCER
     Dosage: ONCE DAILY DAYS 1-14 OF EVERY 21 (AS PER PROTOCOL)?COURSE ID 1
     Route: 048
     Dates: start: 20110222
  19. PREDNISONE. [Suspect]
     Active Substance: PREDNISONE
     Dosage: COURSE ID 3
     Route: 048
     Dates: start: 20110411
  20. PREDNISONE. [Suspect]
     Active Substance: PREDNISONE
     Dosage: COURSE ID 4
     Route: 048
     Dates: start: 20110502
  21. BEVACIZUMAB [Suspect]
     Active Substance: BEVACIZUMAB
     Indication: PROSTATE CANCER
     Dosage: 15 MG/KG CYCLE 1 DAY 1, REPEATED EVERY 21 DAYS (AS PER PROTOCOL)?COURSE ID 2
     Route: 042
     Dates: start: 20110222
  22. BEVACIZUMAB [Suspect]
     Active Substance: BEVACIZUMAB
     Dosage: COURSE ID 6
     Route: 042
     Dates: start: 20110613, end: 20110707
  23. PREDNISONE. [Suspect]
     Active Substance: PREDNISONE
     Indication: PROSTATE CANCER
     Dosage: 10 MG ORALLY EVERY DAY (AS PER PROTOCOL)
     Route: 048
     Dates: start: 20110222

REACTIONS (1)
  - Alanine aminotransferase increased [Unknown]
